FAERS Safety Report 6712671-5 (Version None)
Quarter: 2010Q2

REPORT INFORMATION
  Report Type: 
  Country: None (occurrence: None)
  Receive Date: 20100505
  Receipt Date: 20100505
  Transmission Date: 20101027
  Serious: Yes (Disabling, Other)
  Sender: FDA-Public Use
  Company Number: None

PATIENT
  Age: 58 Year
  Sex: Female
  Weight: 90.7194 kg

DRUGS (1)
  1. ENBREL [Suspect]
     Indication: PSORIASIS
     Dosage: 50 MG TWICE A WEEK 057
     Dates: start: 20091130, end: 20100201

REACTIONS (2)
  - HERPES ZOSTER OPHTHALMIC [None]
  - VISUAL IMPAIRMENT [None]
